FAERS Safety Report 12182879 (Version 1)
Quarter: 2016Q1

REPORT INFORMATION
  Report Type: Spontaneous
  Country: CA (occurrence: CA)
  Receive Date: 20160316
  Receipt Date: 20160316
  Transmission Date: 20160526
  Serious: Yes (Hospitalization, Other)
  Sender: FDA-Public Use
  Company Number: CA-APOTEX-2016AP007112

PATIENT
  Age: 42 Year
  Sex: Female

DRUGS (4)
  1. PARACETAMOL WITH CODEINE PHOSPHATE [Concomitant]
     Active Substance: ACETAMINOPHEN\CODEINE PHOSPHATE
     Indication: HEADACHE
     Dosage: UNK, UNKNOWN
     Route: 065
  2. APO-NAPROXEN [Suspect]
     Active Substance: NAPROXEN
     Indication: HEADACHE
     Dosage: 2 UNK, UNKNOWN
     Route: 065
  3. DOMPERIDONE [Concomitant]
     Active Substance: DOMPERIDONE
     Indication: BREAST FEEDING
     Dosage: UNK UNK, UNKNOWN
     Route: 065
  4. APO-SUMATRIPTAN [Suspect]
     Active Substance: SUMATRIPTAN SUCCINATE
     Indication: HEADACHE
     Dosage: 2 DF, UNKNOWN
     Route: 065

REACTIONS (6)
  - Reversible cerebral vasoconstriction syndrome [Recovered/Resolved]
  - Cerebrovascular accident [Recovered/Resolved]
  - Meningitis aseptic [Recovered/Resolved]
  - CSF test abnormal [Recovered/Resolved]
  - Lymphocytosis [Recovered/Resolved]
  - Drug ineffective [Recovered/Resolved]
